FAERS Safety Report 12954728 (Version 1)
Quarter: 2016Q4

REPORT INFORMATION
  Report Type: Spontaneous
  Country: US (occurrence: US)
  Receive Date: 20161117
  Receipt Date: 20161117
  Transmission Date: 20170207
  Serious: No
  Sender: FDA-Public Use
  Company Number: None

PATIENT
  Age: 14 Year
  Sex: Female
  Weight: 49.5 kg

DRUGS (2)
  1. OMEPRAZOLE. [Concomitant]
     Active Substance: OMEPRAZOLE
  2. CARMEX POMEGRANATE BROAD SPECTRUM SPF 15 SUNSCREEN [Suspect]
     Active Substance: AVOBENZONE\HOMOSALATE\OCTISALATE\OCTOCRYLENE
     Indication: THERAPEUTIC SKIN CARE TOPICAL
     Dosage: ?          QUANTITY:1 CHAPSTICK;OTHER ROUTE:ITS CHAPSTICK?
     Dates: start: 20161115, end: 20161116

REACTIONS (3)
  - Lip dry [None]
  - Skin disorder [None]
  - Feeling abnormal [None]

NARRATIVE: CASE EVENT DATE: 20161115
